FAERS Safety Report 10076661 (Version 1)
Quarter: 2014Q2

REPORT INFORMATION
  Report Type: Spontaneous
  Country: US (occurrence: US)
  Receive Date: 20140414
  Receipt Date: 20140414
  Transmission Date: 20141212
  Serious: No
  Sender: FDA-Public Use
  Company Number: US-PFIZER INC-2014103879

PATIENT
  Age: 31 Year
  Sex: Female

DRUGS (4)
  1. PRISTIQ [Suspect]
     Dosage: 50 MG, DAILY
  2. PRISTIQ [Suspect]
     Dosage: 50 MG, ALTERNATE DAY
  3. PRISTIQ [Suspect]
     Dosage: 1/4TH OF THE 50MG TABLET, UNK
  4. PRISTIQ [Suspect]
     Dosage: UNK

REACTIONS (4)
  - Dizziness [Unknown]
  - Nausea [Unknown]
  - Fatigue [Unknown]
  - Intentional product misuse [Unknown]
